FAERS Safety Report 6340085-9 (Version None)
Quarter: 2009Q3

REPORT INFORMATION
  Report Type: 
  Country: None (occurrence: None)
  Receive Date: 20090903
  Receipt Date: 20000905
  Transmission Date: 20100115
  Serious: No
  Sender: FDA-Public Use
  Company Number: US-ABBOTT-08P-163-0459963-00

PATIENT
  Sex: Female

DRUGS (2)
  1. PLACIDYL [Suspect]
     Indication: DRUG USE FOR UNKNOWN INDICATION
  2. UNKNOWN DRUGS [Concomitant]
     Indication: DRUG USE FOR UNKNOWN INDICATION

REACTIONS (2)
  - ILL-DEFINED DISORDER [None]
  - POOR QUALITY SLEEP [None]
